FAERS Safety Report 5466073-2 (Version None)
Quarter: 2007Q3

REPORT INFORMATION
  Report Type: 
  Country: None (occurrence: None)
  Receive Date: 20070924
  Receipt Date: 20070911
  Transmission Date: 20080115
  Serious: Yes (Hospitalization, Disabling)
  Sender: FDA-Public Use
  Company Number: GB-ELI_LILLY_AND_COMPANY-GB200709002281

PATIENT
  Age: 35 Year
  Sex: Female

DRUGS (4)
  1. FLUOXETINE [Suspect]
     Indication: DEPRESSION
     Dosage: 20 UNK, UNK
     Route: 048
     Dates: start: 20000101, end: 20070201
  2. ACOMPLIA [Concomitant]
     Indication: OBESITY
     Dosage: 20 MG, UNK
     Route: 048
     Dates: start: 20061113, end: 20070814
  3. DIHYDROCODEINE BITARTRATE INJ [Concomitant]
     Indication: ARTHRALGIA
     Dosage: 30 UNK, UNK
     Route: 048
     Dates: start: 20020101
  4. RANITIDINE [Concomitant]
     Indication: GASTROOESOPHAGEAL REFLUX DISEASE
     Dosage: 150 UNK, UNK
     Dates: start: 19950101

REACTIONS (7)
  - AGITATION [None]
  - DECREASED INTEREST [None]
  - DEPRESSED MOOD [None]
  - FATIGUE [None]
  - FEELINGS OF WORTHLESSNESS [None]
  - MENTAL IMPAIRMENT [None]
  - MOOD SWINGS [None]
